FAERS Safety Report 22629235 (Version 1)
Quarter: 2023Q2

REPORT INFORMATION
  Report Type: Spontaneous
  Country: US (occurrence: None)
  Receive Date: 20230619
  Receipt Date: 20230619
  Transmission Date: 20230721
  Serious: No
  Sender: FDA-Public Use
  Company Number: None

PATIENT
  Sex: Female
  Weight: 91.17 kg

DRUGS (15)
  1. KISQALI [Suspect]
     Active Substance: RIBOCICLIB
     Indication: Breast cancer female
     Dosage: OTHER FREQUENCY : 21 DAYS ON, 7D OFF;?
     Route: 048
  2. ATIVAN [Concomitant]
     Active Substance: LORAZEPAM
  3. BIOTIN [Concomitant]
     Active Substance: BIOTIN
  4. CALTRATE [Concomitant]
     Active Substance: CALCIUM CARBONATE
  5. VITAMINS [Concomitant]
     Active Substance: VITAMINS
  6. FOLIC ACID [Concomitant]
     Active Substance: FOLIC ACID
  7. LETROZOLE [Concomitant]
     Active Substance: LETROZOLE
  8. VITAMINS [Concomitant]
     Active Substance: VITAMINS
  9. OMEGA-3 FATTY ACIDS [Concomitant]
     Active Substance: OMEGA-3 FATTY ACIDS
  10. OMEPRAZOLE [Concomitant]
     Active Substance: OMEPRAZOLE
  11. SUDAFED [Concomitant]
     Active Substance: PSEUDOEPHEDRINE HYDROCHLORIDE
  12. Tarbinafine [Concomitant]
  13. TOVIAZ [Concomitant]
     Active Substance: FESOTERODINE FUMARATE
  14. TUMS [Concomitant]
     Active Substance: CALCIUM CARBONATE
  15. VITAMIN E [Concomitant]
     Active Substance: .ALPHA.-TOCOPHEROL

REACTIONS (2)
  - Malignant neoplasm progression [None]
  - Arthralgia [None]
